FAERS Safety Report 16372463 (Version 1)
Quarter: 2019Q2

REPORT INFORMATION
  Report Type: Spontaneous
  Country: IN (occurrence: IN)
  Receive Date: 20190530
  Receipt Date: 20190530
  Transmission Date: 20190711
  Serious: Yes (Other)
  Sender: FDA-Public Use
  Company Number: IN-OXFORD PHARMACEUTICALS, LLC-2019OXF00078

PATIENT
  Age: 30 Year
  Sex: Female

DRUGS (1)
  1. RISPERIDONE. [Suspect]
     Active Substance: RISPERIDONE
     Indication: BIPOLAR DISORDER
     Dosage: 4 MG, TWICE NIGHTLY
     Route: 065

REACTIONS (3)
  - Mastitis [Recovering/Resolving]
  - Hyperprolactinaemia [Unknown]
  - Granuloma [Recovering/Resolving]
